FAERS Safety Report 9062247 (Version 1)
Quarter: 2013Q1

REPORT INFORMATION
  Report Type: Spontaneous
  Country: US (occurrence: US)
  Receive Date: 20130213
  Receipt Date: 20130213
  Transmission Date: 20140127
  Serious: Yes (Hospitalization)
  Sender: FDA-Public Use
  Company Number: US-AMGEN-USASP2013008533

PATIENT
  Sex: Male

DRUGS (3)
  1. XGEVA [Suspect]
     Indication: PRODUCT USED FOR UNKNOWN INDICATION
     Dosage: 120 MG, Q4WK
     Dates: start: 201301
  2. LUPRON [Concomitant]
  3. CASODEX [Concomitant]

REACTIONS (1)
  - Metastases to bone [Unknown]
